FAERS Safety Report 22637407 (Version 1)
Quarter: 2023Q2

REPORT INFORMATION
  Report Type: Spontaneous
  Country: US (occurrence: None)
  Receive Date: 20230623
  Receipt Date: 20230623
  Transmission Date: 20230721
  Serious: No
  Sender: FDA-Public Use
  Company Number: None

PATIENT
  Age: 12 Year

DRUGS (3)
  1. DULOXETINE [Suspect]
     Active Substance: DULOXETINE
  2. BUPROPION [Suspect]
     Active Substance: BUPROPION
  3. DROSPIRENONE\ETHINYL ESTRADIOL [Suspect]
     Active Substance: DROSPIRENONE\ETHINYL ESTRADIOL

REACTIONS (6)
  - Fatigue [None]
  - Abdominal pain [None]
  - Nausea [None]
  - Accidental exposure to product [None]
  - Tachycardia [None]
  - Wrong product administered [None]
